FAERS Safety Report 6278158-1 (Version None)
Quarter: 2009Q3

REPORT INFORMATION
  Report Type: 
  Country: None (occurrence: None)
  Receive Date: 20090722
  Receipt Date: 20070430
  Transmission Date: 20100115
  Serious: Yes (Hospitalization, Other)
  Sender: FDA-Public Use
  Company Number: IS-ASTRAZENECA-2007UW01404

PATIENT
  Age: 544 Month
  Sex: Male
  Weight: 84.4 kg

DRUGS (16)
  1. SEROQUEL [Suspect]
     Indication: MAJOR DEPRESSION
     Route: 048
     Dates: start: 20011204, end: 20040701
  2. SEROQUEL [Suspect]
     Indication: PSYCHOTIC DISORDER
     Route: 048
     Dates: start: 20011204, end: 20040701
  3. SEROQUEL [Suspect]
     Dosage: 200 TO 300 MG
     Route: 048
     Dates: start: 20011204
  4. SEROQUEL [Suspect]
     Dosage: 200 TO 300 MG
     Route: 048
     Dates: start: 20011204
  5. SEROQUEL [Suspect]
     Dosage: 300-400 MG
     Route: 048
     Dates: start: 20040713, end: 20060101
  6. SEROQUEL [Suspect]
     Dosage: 300-400 MG
     Route: 048
     Dates: start: 20040713, end: 20060101
  7. HEROIN [Suspect]
  8. PROTONIX [Concomitant]
     Route: 048
     Dates: start: 20011030
  9. FLEXERIL [Concomitant]
     Route: 048
     Dates: start: 20011107
  10. METHADONE HCL [Concomitant]
     Route: 048
     Dates: start: 20010922
  11. PROZAC [Concomitant]
     Route: 048
     Dates: start: 20040519
  12. TRAZODONE [Concomitant]
     Route: 048
     Dates: start: 20010512
  13. SOLU-MEDROL [Concomitant]
     Route: 048
     Dates: start: 20050214
  14. SINGULAIR [Concomitant]
     Route: 048
     Dates: start: 20050214
  15. REMERON [Concomitant]
     Route: 048
     Dates: start: 20020128
  16. PAXIL [Concomitant]
     Route: 048
     Dates: start: 20020128

REACTIONS (12)
  - ASTHMA [None]
  - CHEMICAL BURNS OF EYE [None]
  - CHEST PAIN [None]
  - DIABETES MELLITUS [None]
  - DIABETES MELLITUS INADEQUATE CONTROL [None]
  - HEADACHE [None]
  - HYPERGLYCAEMIA [None]
  - OEDEMA PERIPHERAL [None]
  - OVERDOSE [None]
  - PNEUMONIA [None]
  - SKIN LACERATION [None]
  - TACHYCARDIA [None]
